FAERS Safety Report 21838641 (Version 1)
Quarter: 2023Q1

REPORT INFORMATION
  Report Type: Spontaneous
  Country: US (occurrence: None)
  Receive Date: 20230108
  Receipt Date: 20230108
  Transmission Date: 20230417
  Serious: Yes (Disabling)
  Sender: FDA-Public Use
  Company Number: None

PATIENT
  Age: 65 Year
  Sex: Female
  Weight: 131.85 kg

DRUGS (11)
  1. OZEMPIC [Suspect]
     Active Substance: SEMAGLUTIDE
     Indication: Type 2 diabetes mellitus
     Dosage: OTHER QUANTITY : 1 INJECTION(S);?OTHER FREQUENCY : WEEKLY;?
     Route: 058
     Dates: start: 20221002, end: 20221127
  2. LEVOTHYROXINE [Concomitant]
     Active Substance: LEVOTHYROXINE
  3. VALSARTAN [Concomitant]
     Active Substance: VALSARTAN
  4. INDAPAMIDE [Concomitant]
     Active Substance: INDAPAMIDE
  5. ELIQUIS [Concomitant]
     Active Substance: APIXABAN
  6. DILTIAZEM [Concomitant]
     Active Substance: DILTIAZEM
  7. ROSUVASTATIN [Concomitant]
     Active Substance: ROSUVASTATIN
  8. GABAPENTIN [Concomitant]
     Active Substance: GABAPENTIN
  9. A reds [Concomitant]
  10. ALLEGRA [Concomitant]
     Active Substance: FEXOFENADINE HYDROCHLORIDE
  11. MUCINEX [Concomitant]
     Active Substance: GUAIFENESIN

REACTIONS (2)
  - Visual impairment [None]
  - Retinal haemorrhage [None]

NARRATIVE: CASE EVENT DATE: 20221006
